FAERS Safety Report 11982580 (Version 4)
Quarter: 2016Q2

REPORT INFORMATION
  Report Type: Report from Study
  Country: AU (occurrence: AU)
  Receive Date: 20160201
  Receipt Date: 20160629
  Transmission Date: 20160815
  Serious: Yes (Hospitalization)
  Sender: FDA-Public Use
  Company Number: PHHO2016AU001322

PATIENT
  Age: 42 Year
  Sex: Male
  Weight: 94.7 kg

DRUGS (1)
  1. LDK378 [Suspect]
     Active Substance: CERITINIB
     Indication: ANAPLASTIC LARGE-CELL LYMPHOMA
     Dosage: 750 MG, UNK
     Route: 048
     Dates: start: 20121217, end: 20151210

REACTIONS (1)
  - Ejection fraction decreased [Not Recovered/Not Resolved]

NARRATIVE: CASE EVENT DATE: 20160113
